FAERS Safety Report 4705781-5 (Version None)
Quarter: 2005Q3

REPORT INFORMATION
  Report Type: 
  Country: None (occurrence: None)
  Receive Date: 20050701
  Receipt Date: 20050324
  Transmission Date: 20060218
  Serious: Yes (Death)
  Sender: FDA-Public Use
  Company Number: US-MERCK-0503USA04637

PATIENT
  Age: 55 Year
  Sex: Female
  Weight: 73 kg

DRUGS (12)
  1. VIOXX [Suspect]
     Indication: BACK PAIN
     Route: 048
     Dates: start: 20010801, end: 20020101
  2. VIOXX [Suspect]
     Route: 048
     Dates: start: 20010801, end: 20020101
  3. MYSOLINE [Concomitant]
     Route: 065
  4. LIPITOR [Concomitant]
     Indication: BLOOD CHOLESTEROL INCREASED
     Route: 065
     Dates: start: 19990101, end: 20020101
  5. PAXIL [Concomitant]
     Indication: DEPRESSION
     Route: 065
     Dates: start: 20010101, end: 20020101
  6. DOXEPIN HYDROCHLORIDE [Concomitant]
     Route: 065
  7. ACETAMINOPHEN AND HYDROCODONE BITARTRATE [Concomitant]
     Route: 065
     Dates: start: 20010101, end: 20020101
  8. PREMARIN [Concomitant]
     Indication: HORMONE REPLACEMENT THERAPY
     Route: 065
     Dates: start: 20010101, end: 20020101
  9. ASPIRIN [Concomitant]
     Route: 065
     Dates: start: 19900101, end: 20020101
  10. NORTRIPTYLINE [Concomitant]
     Route: 065
  11. CARISOPRODOL [Concomitant]
     Route: 065
  12. PREVACID [Concomitant]
     Route: 065

REACTIONS (4)
  - GASTROOESOPHAGEAL REFLUX DISEASE [None]
  - HYPERTENSION [None]
  - MYOCARDIAL INFARCTION [None]
  - OVERDOSE [None]
